FAERS Safety Report 8024268-8 (Version None)
Quarter: 2012Q1

REPORT INFORMATION
  Report Type: 
  Country: None (occurrence: None)
  Receive Date: 20120103
  Receipt Date: 20111220
  Transmission Date: 20120608
  Serious: Yes (Disabling, Other)
  Sender: FDA-Public Use
  Company Number: ACO_28530_2011

PATIENT
  Age: 41 Year
  Sex: Female
  Weight: 61.2 kg

DRUGS (3)
  1. AMPYRA [Suspect]
     Indication: GAIT DISTURBANCE
     Dosage: 10 MG, Q 12 HRS, ORAL
     Route: 048
     Dates: start: 20110101
  2. ANTIDEPRESSANTS [Concomitant]
  3. BETASERON [Concomitant]

REACTIONS (3)
  - PAIN IN EXTREMITY [None]
  - ABASIA [None]
  - HYPOAESTHESIA [None]
